FAERS Safety Report 8897550 (Version 1)
Quarter: 2012Q4

REPORT INFORMATION
  Report Type: Spontaneous
  Country: FR (occurrence: None)
  Receive Date: 20121106
  Receipt Date: 20121106
  Transmission Date: 20130627
  Serious: Yes (Other)
  Sender: FDA-Public Use
  Company Number: 2012/159

PATIENT
  Age: 50 Year
  Sex: Female

DRUGS (3)
  1. VALPROATE [Suspect]
     Indication: SEIZURE
  2. ORLISTAT [Suspect]
     Indication: OVERWEIGHT
  3. LACOSAMIDE [Concomitant]

REACTIONS (2)
  - Convulsion [None]
  - Malnutrition [None]
